FAERS Safety Report 6884615-7 (Version None)
Quarter: 2010Q3

REPORT INFORMATION
  Report Type: 
  Country: None (occurrence: None)
  Receive Date: 20100729
  Receipt Date: 20070712
  Transmission Date: 20110219
  Serious: Yes (Hospitalization, Disabling)
  Sender: FDA-Public Use
  Company Number: US-PFIZER INC-2007058376

PATIENT
  Sex: Female
  Weight: 120.2 kg

DRUGS (5)
  1. CELEBREX [Suspect]
     Indication: PAIN
     Dates: start: 20011101
  2. BEXTRA [Suspect]
     Indication: PAIN
     Dates: end: 20050101
  3. VIOXX [Suspect]
     Indication: PAIN
     Dosage: 1-2 DAILY
     Dates: start: 20020101, end: 20040401
  4. ACETYLSALICYLIC ACID SRT [Concomitant]
  5. FUROSEMIDE [Concomitant]
     Dates: start: 20030101

REACTIONS (2)
  - DEEP VEIN THROMBOSIS [None]
  - MYOCARDIAL INFARCTION [None]
